FAERS Safety Report 4340021-0 (Version None)
Quarter: 2004Q2

REPORT INFORMATION
  Report Type: 
  Country: None (occurrence: None)
  Receive Date: 20040416
  Receipt Date: 20040405
  Transmission Date: 20050107
  Serious: Yes (Other)
  Sender: FDA-Public Use
  Company Number: ES-BRISTOL-MYERS SQUIBB COMPANY-12551172

PATIENT
  Age: 79 Year
  Sex: Male

DRUGS (1)
  1. AMPICILLIN [Suspect]
     Indication: MENINGITIS LISTERIA
     Route: 042

REACTIONS (4)
  - CONFUSIONAL STATE [None]
  - IRRITABILITY [None]
  - MYOCLONUS [None]
  - RENAL FAILURE ACUTE [None]
